FAERS Safety Report 8516941-X (Version None)
Quarter: 2012Q3

REPORT INFORMATION
  Report Type: 
  Country: None (occurrence: None)
  Receive Date: 20120718
  Receipt Date: 20120712
  Transmission Date: 20120928
  Serious: Yes (Death, Other)
  Sender: FDA-Public Use
  Company Number: ES-ELI_LILLY_AND_COMPANY-ES201201005092

PATIENT
  Sex: Female
  Weight: 64 kg

DRUGS (8)
  1. FORTEO [Suspect]
     Indication: OSTEOPOROSIS
     Dosage: 20 UG, QD
     Route: 058
     Dates: start: 20100608
  2. SINTROM [Concomitant]
  3. HEMOVAS [Concomitant]
     Indication: ANGIOPATHY
     Dosage: 1 DF, BID
     Route: 048
  4. ESERTIA [Concomitant]
     Indication: ANXIETY
     Dosage: 20 MG, QD
     Route: 048
  5. LESCOL [Concomitant]
     Dosage: 1 DF, QD
     Route: 048
  6. LORAZEPAM [Concomitant]
     Dosage: UNK, BID
     Route: 048
  7. OMEPRAZOLE [Concomitant]
  8. ATENOLOL [Concomitant]

REACTIONS (3)
  - CONVULSION [None]
  - ISCHAEMIC STROKE [None]
  - COMA [None]
